FAERS Safety Report 8488264-9 (Version None)
Quarter: 2012Q3

REPORT INFORMATION
  Report Type: 
  Country: None (occurrence: None)
  Receive Date: 20120705
  Receipt Date: 20120629
  Transmission Date: 20120928
  Serious: Yes (Other)
  Sender: FDA-Public Use
  Company Number: BR-PFIZER INC-2012005714

PATIENT
  Age: 50 Year
  Sex: Female

DRUGS (3)
  1. VARENICLINE TARTRATE [Suspect]
     Dosage: 0.5 MG, 2X/DAY (EVERY 12 HOURS)
     Route: 048
     Dates: start: 20120101, end: 20120101
  2. VARENICLINE TARTRATE [Suspect]
     Dosage: 1 MG, EVERY 12 HOURS
     Route: 048
     Dates: start: 20120101
  3. VARENICLINE TARTRATE [Suspect]
     Indication: SMOKING CESSATION THERAPY
     Dosage: UNK
     Route: 048
     Dates: start: 20120120, end: 20120101

REACTIONS (6)
  - EMOTIONAL DISORDER [None]
  - COUGH [None]
  - INCREASED UPPER AIRWAY SECRETION [None]
  - URINARY TRACT INFECTION [None]
  - NERVOUSNESS [None]
  - TENSION [None]
